FAERS Safety Report 5161829-8 (Version None)
Quarter: 2006Q4

REPORT INFORMATION
  Report Type: 
  Country: None (occurrence: None)
  Receive Date: 20061130
  Receipt Date: 20060914
  Transmission Date: 20070319
  Serious: No
  Sender: FDA-Public Use
  Company Number: US-GLAXOSMITHKLINE-A0621518A

PATIENT
  Age: 58 Year
  Sex: Male
  Weight: 90 kg

DRUGS (2)
  1. WELLBUTRIN XL [Suspect]
     Indication: DEPRESSION
     Dosage: 300MG PER DAY
     Route: 048
  2. EFFEXOR [Suspect]
     Indication: DEPRESSION
     Route: 065

REACTIONS (2)
  - AMNESIA [None]
  - DRUG INTERACTION [None]
